FAERS Safety Report 9494099 (Version 1)
Quarter: 2013Q3

REPORT INFORMATION
  Report Type: Spontaneous
  Country: US (occurrence: None)
  Receive Date: 20130829
  Receipt Date: 20130829
  Transmission Date: 20140515
  Serious: No
  Sender: FDA-Public Use
  Company Number: None

PATIENT
  Age: 67 Year
  Sex: Male
  Weight: 82.7 kg

DRUGS (1)
  1. SERTRALINE [Suspect]
     Indication: DEPRESSION
     Route: 048
     Dates: start: 20130807, end: 20130823

REACTIONS (1)
  - Rash [None]
